FAERS Safety Report 6848820-8 (Version None)
Quarter: 2010Q3

REPORT INFORMATION
  Report Type: 
  Country: None (occurrence: None)
  Receive Date: 20100716
  Receipt Date: 20070911
  Transmission Date: 20110219
  Serious: No
  Sender: FDA-Public Use
  Company Number: US-PFIZER INC-2007076362

PATIENT
  Sex: Female
  Weight: 84.1 kg

DRUGS (6)
  1. CHANTIX [Suspect]
     Indication: SMOKING CESSATION THERAPY
     Dates: start: 20060301
  2. ACETYLSALICYLIC ACID [Concomitant]
  3. HERBAL NOS/MINERALS NOS [Concomitant]
  4. LISINOPRIL [Concomitant]
  5. LIPITOR [Concomitant]
  6. SPIRIVA [Concomitant]

REACTIONS (3)
  - DYSPEPSIA [None]
  - MALAISE [None]
  - MEDICATION ERROR [None]
